FAERS Safety Report 25220602 (Version 2)
Quarter: 2025Q2

REPORT INFORMATION
  Report Type: Spontaneous
  Country: IT (occurrence: IT)
  Receive Date: 20250421
  Receipt Date: 20250506
  Transmission Date: 20250716
  Serious: Yes (Death)
  Sender: NOVARTIS
  Company Number: IT-002147023-NVSC2025IT064588

PATIENT
  Age: 15 Year
  Sex: Male

DRUGS (8)
  1. DABRAFENIB [Suspect]
     Active Substance: DABRAFENIB
     Indication: BRAF V600E mutation positive
     Dosage: 125 MG, BID
     Route: 065
     Dates: start: 20210522, end: 20210608
  2. DABRAFENIB [Suspect]
     Active Substance: DABRAFENIB
     Indication: Naevoid melanoma
     Dosage: 125 MG, BID
     Route: 065
     Dates: start: 20210702
  3. TRAMETINIB [Suspect]
     Active Substance: TRAMETINIB
     Indication: BRAF V600E mutation positive
     Dosage: 1.5 MG, QD
     Route: 065
     Dates: start: 20210522, end: 20210608
  4. TRAMETINIB [Suspect]
     Active Substance: TRAMETINIB
     Indication: Naevoid melanoma
  5. ASCORBIC ACID\FERRIC PYROPHOSPHATE [Concomitant]
     Active Substance: ASCORBIC ACID\FERRIC PYROPHOSPHATE
     Indication: Product used for unknown indication
     Dosage: 1 DOSAGE FORM, BID
     Route: 065
     Dates: start: 20210607
  6. MESALAMINE [Concomitant]
     Active Substance: MESALAMINE
     Indication: Product used for unknown indication
     Dosage: 3 DOSAGE FORM, QD (1 CP X 3/DIE)
     Route: 065
     Dates: start: 20210607
  7. Paxabel [Concomitant]
     Indication: Product used for unknown indication
     Dosage: 1 DOSAGE FORM, QD
     Route: 065
     Dates: start: 20210607
  8. FOLIC ACID [Concomitant]
     Active Substance: FOLIC ACID
     Indication: Product used for unknown indication
     Dosage: 1 DOSAGE FORM, QD
     Route: 065
     Dates: start: 20210607

REACTIONS (4)
  - BRAF V600E mutation positive [Fatal]
  - Naevoid melanoma [Fatal]
  - Malignant neoplasm progression [Fatal]
  - Pyrexia [Recovered/Resolved]

NARRATIVE: CASE EVENT DATE: 20210606
